FAERS Safety Report 13952392 (Version 1)
Quarter: 2017Q3

REPORT INFORMATION
  Report Type: Spontaneous
  Country: US (occurrence: US)
  Receive Date: 20170911
  Receipt Date: 20170911
  Transmission Date: 20171128
  Serious: No
  Sender: FDA-Public Use
  Company Number: US-TEVA-724935ACC

PATIENT
  Sex: Female
  Weight: 54 kg

DRUGS (2)
  1. FENTANYL. [Suspect]
     Active Substance: FENTANYL
     Indication: PRODUCT USED FOR UNKNOWN INDICATION
     Route: 065
     Dates: start: 201609
  2. FENTANYL. [Suspect]
     Active Substance: FENTANYL
     Route: 065

REACTIONS (9)
  - Pain [Unknown]
  - Withdrawal syndrome [Unknown]
  - Product storage error [Unknown]
  - Incorrect drug administration duration [Unknown]
  - Vomiting [Unknown]
  - Weight decreased [Unknown]
  - Application site pain [Unknown]
  - Headache [Unknown]
  - Application site erythema [Unknown]

NARRATIVE: CASE EVENT DATE: 2016
